FAERS Safety Report 6581854-X (Version None)
Quarter: 2010Q1

REPORT INFORMATION
  Report Type: 
  Country: None (occurrence: None)
  Receive Date: 20100215
  Receipt Date: 20100115
  Transmission Date: 20100710
  Serious: No
  Sender: FDA-Public Use
  Company Number: US-BAYER-201010915BCC

PATIENT
  Age: 66 Year
  Sex: Male
  Weight: 111 kg

DRUGS (14)
  1. ALEVE [Suspect]
     Indication: ARTHRITIS
     Dosage: UNIT DOSE: 220 MG
     Route: 048
     Dates: start: 20090901
  2. METFORMIN [Concomitant]
     Route: 065
  3. GLUCOPHAGE [Concomitant]
     Route: 065
  4. LISINOPRIL [Concomitant]
     Route: 065
  5. DOLLAR GENERAL 81MG ASPIRIN [Concomitant]
     Route: 065
  6. DOLLAR GENERAL MULTIVITAMIN [Concomitant]
     Route: 065
  7. CITRACAL PETITES [Concomitant]
     Route: 065
  8. LOVAZA [Concomitant]
     Route: 065
  9. COMPLEX B [Concomitant]
     Route: 065
  10. FOLIC ACID [Concomitant]
     Route: 065
  11. VITAMIN C [Concomitant]
     Route: 065
  12. VITAMIN D [Concomitant]
     Route: 065
  13. UNKNOWN INHALER [Concomitant]
     Route: 045
  14. VITAMIN B-12 [Concomitant]
     Route: 065

REACTIONS (2)
  - ARTHRITIS [None]
  - PAIN [None]
